FAERS Safety Report 8777686 (Version 2)
Quarter: 2013Q1

REPORT INFORMATION
  Report Type: Report from Study
  Country: DE (occurrence: DE)
  Receive Date: 20120912
  Receipt Date: 20130222
  Transmission Date: 20140127
  Serious: Yes (Hospitalization)
  Sender: FDA-Public Use
  Company Number: DE-BAXTER-2012BAX016098

PATIENT
  Sex: Female

DRUGS (19)
  1. ENDOXAN 1G [Suspect]
     Indication: B-CELL LYMPHOMA
     Route: 040
     Dates: start: 20120726, end: 20120726
  2. ENDOXAN 1G [Suspect]
     Route: 042
     Dates: start: 20120814, end: 20120814
  3. RITUXIMAB [Suspect]
     Indication: B-CELL LYMPHOMA
     Route: 042
     Dates: start: 20120725, end: 20120725
  4. RITUXIMAB [Suspect]
     Route: 042
     Dates: start: 20120813, end: 20120813
  5. DOXORUBICIN [Suspect]
     Indication: B-CELL LYMPHOMA
     Route: 042
     Dates: start: 20120726, end: 20120726
  6. DOXORUBICIN [Suspect]
     Route: 042
     Dates: start: 20120814, end: 20120814
  7. VINCRISTINE [Suspect]
     Indication: B-CELL LYMPHOMA
     Route: 042
     Dates: start: 20120726, end: 20120726
  8. VINCRISTINE [Suspect]
     Route: 042
     Dates: start: 20120814, end: 20120814
  9. PREDNISOLONE [Suspect]
     Indication: B-CELL LYMPHOMA
     Route: 048
     Dates: start: 20120726, end: 20120729
  10. PREDNISOLONE [Suspect]
     Route: 048
     Dates: start: 20120814, end: 20120818
  11. PEGFILGRASTIM [Suspect]
     Indication: B-CELL LYMPHOMA
     Route: 058
     Dates: start: 20120731, end: 20120731
  12. PEGFILGRASTIM [Suspect]
     Route: 058
     Dates: start: 20120817, end: 20120817
  13. ACICLOVIR [Concomitant]
     Indication: PRODUCT USED FOR UNKNOWN INDICATION
     Route: 048
     Dates: start: 20120821, end: 20120822
  14. BISOPROLOL HEMIFUMERAT [Concomitant]
     Indication: HYPERTENSION
     Route: 048
     Dates: start: 20120821, end: 20120822
  15. LOSARTAN-KALIUM [Concomitant]
     Indication: HYPERTENSION
     Route: 048
     Dates: start: 20120821, end: 20120822
  16. ALLOPURINOL [Concomitant]
     Indication: BLOOD URIC ACID INCREASED
     Route: 048
     Dates: start: 20120821, end: 20120822
  17. AMLODIPINE [Concomitant]
     Indication: HYPERTENSION
     Route: 048
     Dates: start: 20120821, end: 20120822
  18. PANTOPRAZOL NATRIUM [Concomitant]
     Indication: PROPHYLAXIS AGAINST GASTROINTESTINAL ULCER
     Route: 048
     Dates: start: 20120821, end: 20120822
  19. FUROSEMIDE [Concomitant]
     Indication: OEDEMA
     Route: 048
     Dates: start: 20120821, end: 20120822

REACTIONS (3)
  - Febrile neutropenia [Recovered/Resolved]
  - Neutropenia [Recovered/Resolved]
  - C-reactive protein increased [Recovered/Resolved]
